FAERS Safety Report 13902201 (Version 1)
Quarter: 2017Q3

REPORT INFORMATION
  Report Type: Spontaneous
  Country: US (occurrence: US)
  Receive Date: 20170824
  Receipt Date: 20170824
  Transmission Date: 20171127
  Serious: No
  Sender: FDA-Public Use
  Company Number: US-ROCHE-1134283

PATIENT
  Sex: Female

DRUGS (7)
  1. HERCEPTIN [Suspect]
     Active Substance: TRASTUZUMAB
     Indication: BREAST CANCER METASTATIC
     Route: 065
     Dates: start: 19981119, end: 19990127
  2. TAXOTERE [Concomitant]
     Active Substance: DOCETAXEL
  3. MITOMYCIN. [Concomitant]
     Active Substance: MITOMYCIN
  4. HERCEPTIN [Suspect]
     Active Substance: TRASTUZUMAB
     Indication: HEPATIC CANCER
  5. VELBAN [Concomitant]
     Active Substance: VINBLASTINE SULFATE
  6. FLUOROURACIL. [Concomitant]
     Active Substance: FLUOROURACIL
  7. NAVELBINE [Concomitant]
     Active Substance: VINORELBINE TARTRATE

REACTIONS (14)
  - Oedema [Unknown]
  - Influenza [Unknown]
  - Pyrexia [Unknown]
  - Dyspnoea [Unknown]
  - Oropharyngeal pain [Unknown]
  - Stomatitis [Unknown]
  - Liver tenderness [Unknown]
  - Disease progression [Unknown]
  - Gait disturbance [Unknown]
  - Muscular weakness [Unknown]
  - Confusional state [Unknown]
  - Nausea [Unknown]
  - Insomnia [Unknown]
  - Urinary tract infection [Unknown]
